FAERS Safety Report 25256183 (Version 1)
Quarter: 2025Q2

REPORT INFORMATION
  Report Type: Spontaneous
  Country: CN (occurrence: CN)
  Receive Date: 20250430
  Receipt Date: 20250430
  Transmission Date: 20250716
  Serious: Yes (Other)
  Sender: PFIZER
  Company Number: CN-PFIZER INC-PV202500050686

PATIENT
  Age: 66 Year
  Sex: Male
  Weight: 68.5 kg

DRUGS (2)
  1. TIGECYCLINE [Suspect]
     Active Substance: TIGECYCLINE
     Indication: Pneumonia
     Dosage: 2 DF, 2X/DAY
     Route: 041
     Dates: start: 20250413, end: 20250422
  2. DEXTROSE [Concomitant]
     Active Substance: DEXTROSE MONOHYDRATE
     Indication: Vehicle solution use
     Dosage: 1 DF, 2X/DAY
     Route: 041
     Dates: start: 20250413, end: 20250422

REACTIONS (4)
  - Coagulopathy [Recovering/Resolving]
  - Disease recurrence [Recovering/Resolving]
  - Epistaxis [Recovering/Resolving]
  - Off label use [Unknown]

NARRATIVE: CASE EVENT DATE: 20250413
